FAERS Safety Report 7465046-8 (Version None)
Quarter: 2011Q2

REPORT INFORMATION
  Report Type: 
  Country: None (occurrence: None)
  Receive Date: 20110509
  Receipt Date: 20110426
  Transmission Date: 20111010
  Serious: Yes (Other)
  Sender: FDA-Public Use
  Company Number: US-JNJFOC-20110401836

PATIENT
  Sex: Male
  Weight: 72.58 kg

DRUGS (14)
  1. SAVELLA [Suspect]
     Indication: FIBROMYALGIA
     Route: 048
  2. FENTANYL-100 [Suspect]
     Indication: NEUROPATHY PERIPHERAL
     Route: 062
  3. FENTANYL-100 [Suspect]
     Indication: BACK PAIN
     Route: 062
  4. FENTANYL-100 [Suspect]
     Indication: TRIGEMINAL NEURALGIA
     Route: 062
  5. FENTANYL CITRATE [Suspect]
     Indication: NEUROPATHY PERIPHERAL
     Route: 062
  6. ADDERALL 10 [Concomitant]
     Dosage: 2 30 MG TABLETS IN THE MORNING
     Route: 048
  7. FENTANYL-100 [Suspect]
     Indication: NEUROPATHY PERIPHERAL
     Route: 062
  8. FENTANYL-100 [Suspect]
     Indication: BACK PAIN
     Route: 062
  9. ADDERALL 10 [Concomitant]
     Indication: ANXIETY
     Dosage: ONE 30 MG TABLET IN THE EVENING
     Route: 048
  10. FENTANYL CITRATE [Suspect]
     Indication: BACK PAIN
     Route: 062
  11. FENTANYL-100 [Suspect]
     Indication: TRIGEMINAL NEURALGIA
     Route: 062
  12. FENTANYL CITRATE [Suspect]
     Indication: TRIGEMINAL NEURALGIA
     Route: 062
  13. XANAX [Concomitant]
     Indication: ANXIETY
     Route: 048
  14. OXYCODONE [Concomitant]
     Indication: BREAKTHROUGH PAIN
     Dosage: 30-60 MG, 1-2 30 MG TABLET
     Route: 048

REACTIONS (6)
  - WEIGHT INCREASED [None]
  - WRONG TECHNIQUE IN DRUG USAGE PROCESS [None]
  - WITHDRAWAL SYNDROME [None]
  - HYPERTENSION [None]
  - BREAKTHROUGH PAIN [None]
  - PRODUCT ADHESION ISSUE [None]
